FAERS Safety Report 6697626-1 (Version None)
Quarter: 2010Q2

REPORT INFORMATION
  Report Type: 
  Country: None (occurrence: None)
  Receive Date: 20100423
  Receipt Date: 20100414
  Transmission Date: 20101027
  Serious: Yes (Other)
  Sender: FDA-Public Use
  Company Number: 2009S1006252

PATIENT
  Age: 59 Year
  Sex: Female

DRUGS (1)
  1. PHOSPHOSODA FLAVOR NOT SPECIFIED [Suspect]
     Indication: COLONOSCOPY
     Dosage: 90 ML; TOTAL; PO
     Route: 048
     Dates: start: 20040726

REACTIONS (6)
  - ABDOMINAL PAIN [None]
  - ASTHENIA [None]
  - DIALYSIS [None]
  - LETHARGY [None]
  - RENAL FAILURE [None]
  - WEIGHT DECREASED [None]
